FAERS Safety Report 4448140-5 (Version None)
Quarter: 2004Q3

REPORT INFORMATION
  Report Type: 
  Country: None (occurrence: None)
  Receive Date: 20040812
  Receipt Date: 20040706
  Transmission Date: 20050211
  Serious: No
  Sender: FDA-Public Use
  Company Number: USA040670817

PATIENT
  Age: 45 Year
  Sex: Male
  Weight: 86 kg

DRUGS (2)
  1. CIALIS [Suspect]
     Indication: ERECTILE DYSFUNCTION
     Dosage: 10 MG
     Dates: start: 20040622
  2. VASOTEC [Concomitant]

REACTIONS (10)
  - AURICULAR SWELLING [None]
  - DIZZINESS [None]
  - FATIGUE [None]
  - HEADACHE [None]
  - HYPOAESTHESIA [None]
  - INFLAMMATION [None]
  - MYALGIA [None]
  - OEDEMA MOUTH [None]
  - PERIORBITAL OEDEMA [None]
  - PRURITUS [None]
